FAERS Safety Report 13576236 (Version 1)
Quarter: 2017Q2

REPORT INFORMATION
  Report Type: Spontaneous
  Country: US (occurrence: US)
  Receive Date: 20170524
  Receipt Date: 20170524
  Transmission Date: 20170830
  Serious: Yes (Hospitalization, Other)
  Sender: FDA-Public Use
  Company Number: US-ZYDUS-015262

PATIENT
  Age: 83 Year
  Sex: Female

DRUGS (1)
  1. AMIODARONE [Suspect]
     Active Substance: AMIODARONE
     Indication: ATRIAL FIBRILLATION
     Route: 065

REACTIONS (11)
  - Pulmonary toxicity [Unknown]
  - Organising pneumonia [Unknown]
  - Pleural effusion [Unknown]
  - Pyrexia [Unknown]
  - White blood cell count increased [Unknown]
  - Computerised tomogram thorax abnormal [Unknown]
  - Interstitial lung disease [Unknown]
  - Cough [Unknown]
  - Condition aggravated [Unknown]
  - Hypoxia [Unknown]
  - Lung consolidation [Unknown]
